FAERS Safety Report 18786042 (Version 1)
Quarter: 2021Q1

REPORT INFORMATION
  Report Type: Spontaneous
  Country: AT (occurrence: AT)
  Receive Date: 20210125
  Receipt Date: 20210125
  Transmission Date: 20210419
  Serious: Yes (Other)
  Sender: FDA-Public Use
  Company Number: AT-JNJFOC-20190605601

PATIENT
  Age: 6 Decade
  Sex: Male

DRUGS (1)
  1. STELARA [Suspect]
     Active Substance: USTEKINUMAB
     Indication: CROHN^S DISEASE
     Route: 058
     Dates: start: 2018, end: 201905

REACTIONS (6)
  - Crohn^s disease [Unknown]
  - Headache [Unknown]
  - Tachycardia [Unknown]
  - Nausea [Unknown]
  - Dyspnoea [Unknown]
  - Therapeutic response unexpected [Unknown]
